FAERS Safety Report 7971411-2 (Version None)
Quarter: 2011Q4

REPORT INFORMATION
  Report Type: 
  Country: None (occurrence: None)
  Receive Date: 20111212
  Receipt Date: 20111205
  Transmission Date: 20120403
  Serious: Yes (Hospitalization, Other)
  Sender: FDA-Public Use
  Company Number: US-ABBOTT-11P-163-0880896-00

PATIENT
  Sex: Female

DRUGS (4)
  1. PREDNISONE TAB [Concomitant]
     Indication: PRODUCT USED FOR UNKNOWN INDICATION
  2. HUMIRA [Suspect]
     Indication: PRODUCT USED FOR UNKNOWN INDICATION
  3. FORTEO [Suspect]
     Indication: OSTEOPOROSIS
     Dates: start: 20110701, end: 20110729
  4. FORTEO [Suspect]
     Dosage: 20 MCG DAILY
     Dates: start: 20111110

REACTIONS (7)
  - INFLAMMATION [None]
  - STAPHYLOCOCCAL INFECTION [None]
  - SKIN NECROSIS [None]
  - INTERVERTEBRAL DISC PROTRUSION [None]
  - OSTEOPOROSIS [None]
  - IMMUNE SYSTEM DISORDER [None]
  - ARTHRALGIA [None]
